FAERS Safety Report 17700789 (Version 8)
Quarter: 2021Q2

REPORT INFORMATION
  Report Type: Spontaneous
  Country: US (occurrence: US)
  Receive Date: 20200423
  Receipt Date: 20210508
  Transmission Date: 20210716
  Serious: Yes (Other)
  Sender: FDA-Public Use
  Company Number: US-TAKEDA-2020TUS019493

PATIENT
  Age: 59 Year
  Sex: Male

DRUGS (2)
  1. REVLIMID [Concomitant]
     Active Substance: LENALIDOMIDE
     Dosage: 10 MILLIGRAM
     Route: 065
  2. NINLARO [Suspect]
     Active Substance: IXAZOMIB CITRATE
     Indication: PLASMA CELL MYELOMA
     Dosage: 4 MILLIGRAM
     Route: 048
     Dates: start: 20200331

REACTIONS (9)
  - Swelling [Unknown]
  - Nausea [Unknown]
  - COVID-19 [Recovered/Resolved]
  - Weight increased [Unknown]
  - Pain [Unknown]
  - Pruritus [Unknown]
  - Vomiting [Unknown]
  - Skin discolouration [Unknown]
  - Product storage error [Unknown]

NARRATIVE: CASE EVENT DATE: 202004
